FAERS Safety Report 8931249 (Version 1)
Quarter: 2012Q4

REPORT INFORMATION
  Report Type: 
  Country: US (occurrence: US)
  Receive Date: 20121128
  Receipt Date: 20121128
  Transmission Date: 20130627
  Serious: No
  Sender: FDA-Public Use
  Company Number: US-COVIDIEN/TYCO HEALTHCARE/MALLINCKRODT-T201201945

PATIENT
  Age: 81 Year
  Sex: Female

DRUGS (3)
  1. KIT FOR THE PREPARATION OF TECHNETIUM (TC-99M) SESTAMIBI INJECTION [Suspect]
     Indication: CARDIAC STRESS TEST
     Dosage: UNK
     Route: 042
     Dates: start: 20120509, end: 20120509
  2. ULTRA-TECHNEKOW DTE GENERATOR [Suspect]
     Indication: CARDIAC STRESS TEST
     Dosage: 10 mCi, single
     Route: 042
     Dates: start: 20120509, end: 20120509
  3. ULTRA-TECHNEKOW DTE GENERATOR [Suspect]
     Dosage: 30 mCi, single
     Route: 042
     Dates: start: 20120509, end: 20120509

REACTIONS (2)
  - Local swelling [Recovered/Resolved]
  - Swelling face [Recovered/Resolved]
